FAERS Safety Report 6729952-1 (Version None)
Quarter: 2010Q2

REPORT INFORMATION
  Report Type: 
  Country: None (occurrence: None)
  Receive Date: 20100513
  Receipt Date: 20100429
  Transmission Date: 20101027
  Serious: Yes (Hospitalization)
  Sender: FDA-Public Use
  Company Number: 582860

PATIENT
  Age: 45 Year
  Sex: Male
  Weight: 62.9 kg

DRUGS (12)
  1. METHOTREXATE [Suspect]
     Indication: RHEUMATOID ARTHRITIS
     Dosage: 30MG EVERY 4 WEEKS, INTRAVENOUS
     Route: 042
     Dates: start: 20091013, end: 20091204
  2. METHOTREXATE [Suspect]
     Indication: RHEUMATOID ARTHRITIS
     Dosage: 15 MG MILLIGRAM(S) ORAL
     Route: 048
     Dates: start: 20090316
  3. METHYLPREDNISOLONE [Suspect]
     Indication: RHEUMATOID ARTHRITIS
     Dosage: 4 MG MILLIGRAM(S), ORAL
     Route: 048
     Dates: start: 20070827
  4. (PLACEBO) [Suspect]
     Indication: RHEUMATOID ARTHRITIS
     Dosage: ONE DOSE, INTRAVENOUS
     Route: 042
     Dates: start: 20091013
  5. FOLIC ACID [Concomitant]
  6. RANITIDINE [Concomitant]
  7. (REBAMIPIDE) [Concomitant]
  8. (ADCAL /00056901/) [Concomitant]
  9. CELECOXIB [Suspect]
  10. (VOGLIBOSE) [Concomitant]
  11. METFORMIN HCL [Concomitant]
  12. GLIMEPIRIDE [Concomitant]

REACTIONS (4)
  - ABSCESS [None]
  - CELLULITIS [None]
  - PLANTAR FASCIITIS [None]
  - WOUND INFECTION STAPHYLOCOCCAL [None]
